FAERS Safety Report 25853003 (Version 1)
Quarter: 2025Q3

REPORT INFORMATION
  Report Type: Spontaneous
  Country: US (occurrence: US)
  Receive Date: 20250926
  Receipt Date: 20250926
  Transmission Date: 20251020
  Serious: Yes (Other)
  Sender: PFIZER
  Company Number: US-PFIZER INC-PV202500114118

PATIENT
  Age: 4 Decade
  Sex: Female

DRUGS (1)
  1. DEPO-PROVERA [Suspect]
     Active Substance: MEDROXYPROGESTERONE ACETATE
     Indication: Contraception
     Route: 030
     Dates: start: 2002, end: 200912

REACTIONS (1)
  - Meningioma [Unknown]

NARRATIVE: CASE EVENT DATE: 20180401
